FAERS Safety Report 5573497-1 (Version None)
Quarter: 2007Q4

REPORT INFORMATION
  Report Type: 
  Country: None (occurrence: None)
  Receive Date: 20071220
  Receipt Date: 20071220
  Transmission Date: 20080405
  Serious: Yes (Hospitalization)
  Sender: FDA-Public Use
  Company Number: None

PATIENT
  Age: 63 Year
  Sex: Male

DRUGS (2)
  1. GABAPENTIN [Suspect]
     Indication: DEPRESSION
     Dosage: 600MG  TID  PO
     Route: 048
     Dates: start: 20071011, end: 20071016
  2. GABAPENTIN [Suspect]
     Indication: NEURALGIA
     Dosage: 600MG  TID  PO
     Route: 048
     Dates: start: 20071011, end: 20071016

REACTIONS (1)
  - ATAXIA [None]
